FAERS Safety Report 9343955 (Version 2)
Quarter: 2013Q2

REPORT INFORMATION
  Report Type: Spontaneous
  Country: BR (occurrence: BR)
  Receive Date: 20130612
  Receipt Date: 20130614
  Transmission Date: 20140414
  Serious: Yes (Life-Threatening)
  Sender: FDA-Public Use
  Company Number: BR-BAYER-2013-071433

PATIENT
  Sex: Female

DRUGS (1)
  1. PROMIRA [Suspect]
     Indication: CHRONIC SINUSITIS
     Dosage: 400 MG, QD
     Route: 048
     Dates: start: 20130605

REACTIONS (11)
  - Apparent death [None]
  - Suffocation feeling [None]
  - Dyspnoea [None]
  - Hypersensitivity [Not Recovered/Not Resolved]
  - Generalised erythema [Not Recovered/Not Resolved]
  - Swollen tongue [Not Recovered/Not Resolved]
  - Hypoaesthesia oral [Not Recovered/Not Resolved]
  - Rash pustular [Not Recovered/Not Resolved]
  - Pruritus [Not Recovered/Not Resolved]
  - Palpitations [Not Recovered/Not Resolved]
  - Oedema mouth [Not Recovered/Not Resolved]
